FAERS Safety Report 26155861 (Version 1)
Quarter: 2025Q4

REPORT INFORMATION
  Report Type: Spontaneous
  Country: US (occurrence: US)
  Receive Date: 20251215
  Receipt Date: 20251215
  Transmission Date: 20260117
  Serious: No
  Sender: ALKEM
  Company Number: None

PATIENT
  Age: 5 Month
  Sex: Female

DRUGS (4)
  1. TACROLIMUS [Suspect]
     Active Substance: TACROLIMUS
     Indication: Langerhans^ cell histiocytosis
     Dosage: UNK (OINTMENT)
     Route: 061
  2. CRISABOROLE [Suspect]
     Active Substance: CRISABOROLE
     Indication: Langerhans^ cell histiocytosis
     Dosage: UNK
     Route: 061
  3. FLUOCINOLONE [Suspect]
     Active Substance: FLUOCINOLONE
     Indication: Product used for unknown indication
     Dosage: UNK
     Route: 065
  4. PIMECROLIMUS [Suspect]
     Active Substance: PIMECROLIMUS
     Indication: Langerhans^ cell histiocytosis
     Dosage: UNK
     Route: 061

REACTIONS (3)
  - Application site irritation [Recovered/Resolved]
  - Application site pain [Recovered/Resolved]
  - Treatment failure [Unknown]
